FAERS Safety Report 4685764-4 (Version None)
Quarter: 2005Q2

REPORT INFORMATION
  Report Type: 
  Country: None (occurrence: None)
  Receive Date: 20050608
  Receipt Date: 20050524
  Transmission Date: 20051028
  Serious: Yes (Death, Other)
  Sender: FDA-Public Use
  Company Number: HQWYE338614FEB05

PATIENT
  Age: 44 Year
  Sex: Female
  Weight: 54.48 kg

DRUGS (16)
  1. EFFEXOR XR [Suspect]
     Indication: HORMONE REPLACEMENT THERAPY
     Dosage: SEE IMANGE
     Route: 048
     Dates: end: 20040727
  2. EFFEXOR XR [Suspect]
     Indication: HORMONE REPLACEMENT THERAPY
     Dosage: SEE IMANGE
     Route: 048
     Dates: start: 20040728, end: 20050106
  3. EFFEXOR XR [Suspect]
     Indication: HORMONE REPLACEMENT THERAPY
     Dosage: SEE IMANGE
     Route: 048
     Dates: start: 20050107, end: 20050108
  4. EFFEXOR XR [Suspect]
     Indication: HORMONE REPLACEMENT THERAPY
     Dosage: SEE IMANGE
     Route: 048
     Dates: start: 20050108
  5. BUSPAR(BISPIRONE HYDROCHLORIDE [Concomitant]
  6. . [Concomitant]
  7. . [Concomitant]
  8. . [Concomitant]
  9. . [Concomitant]
  10. . [Concomitant]
  11. . [Concomitant]
  12. . [Concomitant]
  13. . [Concomitant]
  14. . [Concomitant]
  15. . [Concomitant]
  16. . [Concomitant]

REACTIONS (24)
  - ABNORMAL DREAMS [None]
  - AGITATION [None]
  - ANOREXIA [None]
  - ANXIETY [None]
  - CARDIAC ARREST [None]
  - COMPLETED SUICIDE [None]
  - CONSTIPATION [None]
  - DEPRESSION [None]
  - DRUG INEFFECTIVE [None]
  - FEAR [None]
  - HEADACHE [None]
  - INFLUENZA [None]
  - INSOMNIA [None]
  - INTENTIONAL MISUSE [None]
  - MALAISE [None]
  - MENTAL IMPAIRMENT [None]
  - NERVOUSNESS [None]
  - OVERDOSE [None]
  - PHARYNGITIS [None]
  - PHOTOPSIA [None]
  - RESPIRATORY ARREST [None]
  - THINKING ABNORMAL [None]
  - TREATMENT NONCOMPLIANCE [None]
  - WEIGHT DECREASED [None]
